FAERS Safety Report 6422852-6 (Version None)
Quarter: 2009Q4

REPORT INFORMATION
  Report Type: 
  Country: None (occurrence: None)
  Receive Date: 20091102
  Receipt Date: 20091020
  Transmission Date: 20100525
  Serious: Yes (Death, Life-Threatening, Hospitalization, Other)
  Sender: FDA-Public Use
  Company Number: GB-ROCHE-645174

PATIENT
  Age: 62 Year
  Sex: Female

DRUGS (5)
  1. TAMIFLU [Suspect]
     Route: 065
     Dates: start: 20090717, end: 20090720
  2. METFORMIN HCL [Concomitant]
  3. STATIN [Concomitant]
     Dosage: FREQUENCY: NOCTE
  4. AMLODIPINE [Concomitant]
  5. ASPIRIN [Concomitant]

REACTIONS (4)
  - ACUTE HEPATIC FAILURE [None]
  - HEPATITIS A [None]
  - MULTI-ORGAN FAILURE [None]
  - RENAL FAILURE ACUTE [None]
